FAERS Safety Report 17759593 (Version 7)
Quarter: 2023Q4

REPORT INFORMATION
  Report Type: Spontaneous
  Country: US (occurrence: US)
  Receive Date: 20200508
  Receipt Date: 20231003
  Transmission Date: 20240110
  Serious: Yes (Other)
  Sender: FDA-Public Use
  Company Number: US-GILEAD-2020-0464245

PATIENT
  Age: 54 Year
  Sex: Male
  Weight: 94.331 kg

DRUGS (21)
  1. TRUVADA [Suspect]
     Active Substance: EMTRICITABINE\TENOFOVIR DISOPROXIL FUMARATE
     Indication: HIV infection
     Dosage: UNK
     Route: 048
     Dates: start: 200905, end: 201302
  2. TRUVADA [Suspect]
     Active Substance: EMTRICITABINE\TENOFOVIR DISOPROXIL FUMARATE
     Dosage: UNK
     Route: 048
     Dates: start: 20090430, end: 20130131
  3. BIKTARVY [Concomitant]
     Active Substance: BICTEGRAVIR SODIUM\EMTRICITABINE\TENOFOVIR ALAFENAMIDE FUMARATE
  4. VITAMIN D NOS [Concomitant]
     Active Substance: VITAMIN D NOS
  5. METOPROLOL TARTRATE [Concomitant]
     Active Substance: METOPROLOL TARTRATE
  6. HYTRIN [Concomitant]
     Active Substance: TERAZOSIN HYDROCHLORIDE
  7. ACETAMINOPHEN\HYDROCODONE [Concomitant]
     Active Substance: ACETAMINOPHEN\HYDROCODONE
  8. ATORVASTATIN [Concomitant]
     Active Substance: ATORVASTATIN
  9. NITROSTAT [Concomitant]
     Active Substance: NITROGLYCERIN
  10. ASPIRIN [Concomitant]
     Active Substance: ASPIRIN
  11. NORVASC [Concomitant]
     Active Substance: AMLODIPINE BESYLATE
  12. LISINOPRIL [Concomitant]
     Active Substance: LISINOPRIL
  13. NARCAN [Concomitant]
     Active Substance: NALOXONE HYDROCHLORIDE
  14. TESTOSTERONE [Concomitant]
     Active Substance: TESTOSTERONE
  15. ALBUTEROL [Concomitant]
     Active Substance: ALBUTEROL
  16. OMEPRAZOLE [Concomitant]
     Active Substance: OMEPRAZOLE
  17. PEPCID [Concomitant]
     Active Substance: FAMOTIDINE
  18. BACTRIM [Concomitant]
     Active Substance: SULFAMETHOXAZOLE\TRIMETHOPRIM
  19. ZINC [Concomitant]
     Active Substance: ZINC
  20. IBUPROFEN [Concomitant]
     Active Substance: IBUPROFEN
  21. KETOROLAC [Concomitant]
     Active Substance: KETOROLAC TROMETHAMINE

REACTIONS (8)
  - Chronic kidney disease [Not Recovered/Not Resolved]
  - Acute kidney injury [Recovered/Resolved]
  - Renal failure [Recovered/Resolved]
  - Osteonecrosis [Recovered/Resolved]
  - Bone density decreased [Unknown]
  - Bone loss [Unknown]
  - Pain [Unknown]
  - Emotional distress [Unknown]

NARRATIVE: CASE EVENT DATE: 20100930
